FAERS Safety Report 25909574 (Version 1)
Quarter: 2025Q4

REPORT INFORMATION
  Report Type: Spontaneous
  Country: EU (occurrence: EU)
  Receive Date: 20251011
  Receipt Date: 20251011
  Transmission Date: 20260118
  Serious: Yes (Life-Threatening, Other)
  Sender: AMGEN
  Company Number: EU-AMGEN-ROUSP2025198048

PATIENT

DRUGS (5)
  1. CARFILZOMIB [Suspect]
     Active Substance: CARFILZOMIB
     Indication: Plasma cell myeloma refractory
     Dosage: UNK  (20 MG/SQUARE METER D1-2; 56 MG/SQUARE METER  D8-9, 015-16 C1; 56 MG/SQUARE METER D1-2, 08-9, D
     Route: 065
  2. DEXAMETHASONE [Concomitant]
     Active Substance: DEXAMETHASONE
     Indication: Plasma cell myeloma refractory
     Dosage: UNK (20 MG D1-2, D8-9, D15-16 AND 22-23 EACH CYCLE
     Route: 065
  3. ISATUXIMAB [Concomitant]
     Active Substance: ISATUXIMAB
     Indication: Plasma cell myeloma refractory
     Dosage: UNK (10 MG/KG ON D1, 8, 15, 22 IN C1, THEN Q2W)
     Route: 065
  4. LENALIDOMIDE [Concomitant]
     Active Substance: LENALIDOMIDE
     Indication: Plasma cell myeloma refractory
     Dosage: UNK
     Route: 065
  5. TOLODODEKIN ALFA [Concomitant]
     Active Substance: TOLODODEKIN ALFA
     Indication: Plasma cell myeloma refractory
     Dosage: UNK
     Route: 065

REACTIONS (20)
  - Cardiac failure chronic [Unknown]
  - Cardiopulmonary failure [Unknown]
  - Right ventricular failure [Unknown]
  - Acute left ventricular failure [Unknown]
  - Myocardial ischaemia [Unknown]
  - Acute kidney injury [Unknown]
  - Respiratory tract infection [Unknown]
  - Cardiac failure congestive [Unknown]
  - Hypertension [Unknown]
  - Cardiac failure [Unknown]
  - Cardiac failure acute [Unknown]
  - Acute pulmonary oedema [Unknown]
  - Congestive hepatopathy [Unknown]
  - Pulmonary oedema [Unknown]
  - Cardiogenic shock [Unknown]
  - Ejection fraction decreased [Unknown]
  - Dyspnoea [Unknown]
  - Neuropathy peripheral [Unknown]
  - Viral infection [Unknown]
  - Hepatojugular reflux [Unknown]
